FAERS Safety Report 16164610 (Version 1)
Quarter: 2019Q2

REPORT INFORMATION
  Report Type: Spontaneous
  Country: CA (occurrence: CA)
  Receive Date: 20190405
  Receipt Date: 20190405
  Transmission Date: 20190711
  Serious: Yes (Other)
  Sender: FDA-Public Use
  Company Number: CA-GLAXOSMITHKLINE-CA2019GSK061405

PATIENT
  Age: 58 Year
  Sex: Female

DRUGS (3)
  1. ZYBAN [Suspect]
     Active Substance: BUPROPION HYDROCHLORIDE
     Indication: SMOKING CESSATION THERAPY
     Dosage: UNK
     Route: 048
  2. NICODERM CQ [Suspect]
     Active Substance: NICOTINE
     Indication: SMOKING CESSATION THERAPY
     Dosage: 14 MG, 1D
     Route: 062
  3. NICODERM CQ [Suspect]
     Active Substance: NICOTINE
     Dosage: 21 MG, 1D
     Route: 062

REACTIONS (3)
  - Hypertension [Recovered/Resolved]
  - Rash [Recovered/Resolved]
  - Tremor [Recovered/Resolved]
